FAERS Safety Report 24576442 (Version 1)
Quarter: 2024Q4

REPORT INFORMATION
  Report Type: Spontaneous
  Country: US (occurrence: None)
  Receive Date: 20241103
  Receipt Date: 20241103
  Transmission Date: 20250115
  Serious: Yes (Disabling)
  Sender: Public
  Company Number: None

PATIENT
  Age: 70 Year
  Sex: Male
  Weight: 68.4 kg

DRUGS (11)
  1. BROMFENAC\MOXIFLOXACIN\PREDNISONE [Suspect]
     Active Substance: BROMFENAC\MOXIFLOXACIN\PREDNISONE
     Indication: Post procedural inflammation
     Dosage: OTHER QUANTITY : 1 DROP(S);?FREQUENCY : EVERY 6 HOURS;?
     Route: 047
     Dates: start: 20231123, end: 20240124
  2. BROMFENAC\MOXIFLOXACIN\PREDNISONE [Suspect]
     Active Substance: BROMFENAC\MOXIFLOXACIN\PREDNISONE
     Indication: Post procedural infection
  3. BROMFENAC\MOXIFLOXACIN\PREDNISONE [Suspect]
     Active Substance: BROMFENAC\MOXIFLOXACIN\PREDNISONE
     Indication: Prophylaxis
  4. ATORVASTATIN [Concomitant]
     Active Substance: ATORVASTATIN
  5. HYDROCHLOROTHIAZIDE [Concomitant]
     Active Substance: HYDROCHLOROTHIAZIDE
  6. OLMESARTAN [Concomitant]
     Active Substance: OLMESARTAN
  7. DUTASTERIDE [Concomitant]
     Active Substance: DUTASTERIDE
  8. NovoLOG Flexpen U-100 Insulin [Concomitant]
  9. LEVEMIR [Concomitant]
     Active Substance: INSULIN DETEMIR
  10. OMEGA-3 FATTY ACIDS [Concomitant]
     Active Substance: OMEGA-3 FATTY ACIDS
  11. VITAMIN E [Concomitant]
     Active Substance: .ALPHA.-TOCOPHEROL

REACTIONS (3)
  - Mood swings [None]
  - Dexamethasone suppression test [None]
  - Adrenal disorder [None]
